FAERS Safety Report 9585845 (Version 1)
Quarter: 2013Q4

REPORT INFORMATION
  Report Type: Other
  Country: US (occurrence: US)
  Receive Date: 20131003
  Receipt Date: 20131003
  Transmission Date: 20140711
  Serious: Yes (Life-Threatening, Hospitalization)
  Sender: FDA-Public Use
  Company Number: US-LUPIN PHARMACEUTICALS INC.-2013-01662

PATIENT
  Age: 66 Year
  Sex: Male

DRUGS (12)
  1. LEVETIRACETAM [Suspect]
     Indication: CONVULSION
     Route: 065
  2. LEVETIRACETAM [Suspect]
     Route: 065
  3. LEVETIRACETAM [Suspect]
     Route: 065
  4. LEVETIRACETAM [Suspect]
     Indication: CONVULSION
     Route: 065
  5. LEVETIRACETAM [Suspect]
     Route: 065
  6. LEVETIRACETAM [Suspect]
     Route: 065
  7. LEVETIRACETAM [Suspect]
     Indication: CONVULSION
     Route: 065
  8. LEVETIRACETAM [Suspect]
     Route: 065
  9. LEVETIRACETAM [Suspect]
     Route: 065
  10. LEVETIRACETAM [Suspect]
     Indication: CONVULSION
     Route: 065
  11. LEVETIRACETAM [Suspect]
     Route: 065
  12. LEVETIRACETAM [Suspect]
     Route: 065

REACTIONS (4)
  - Drug dose omission [Recovered/Resolved]
  - Major depression [Unknown]
  - Suicide attempt [Recovering/Resolving]
  - Convulsion [Recovered/Resolved]
